FAERS Safety Report 17567931 (Version 1)
Quarter: 2020Q1

REPORT INFORMATION
  Report Type: Spontaneous
  Country: FR (occurrence: FR)
  Receive Date: 20200320
  Receipt Date: 20200320
  Transmission Date: 20200409
  Serious: Yes (Death)
  Sender: FDA-Public Use
  Company Number: FR-BAYER-2020-043935

PATIENT
  Age: 31 Year
  Sex: Female
  Weight: 65 kg

DRUGS (1)
  1. JAYDESS [Suspect]
     Active Substance: LEVONORGESTREL
     Indication: HORMONAL CONTRACEPTION
     Dosage: 14 ?G PER DAY, CONTINUOUSLY
     Route: 015
     Dates: start: 2016, end: 20190208

REACTIONS (10)
  - Peripheral swelling [Fatal]
  - Completed suicide [Fatal]
  - Depression [Fatal]
  - Asthenia [Fatal]
  - Skin odour abnormal [Fatal]
  - Hypertrichosis [Fatal]
  - Weight increased [Fatal]
  - Abdominal pain [Fatal]
  - Disturbance in attention [Fatal]
  - Tachycardia [Fatal]

NARRATIVE: CASE EVENT DATE: 2016
